FAERS Safety Report 9068345 (Version 1)
Quarter: 2013Q1

REPORT INFORMATION
  Report Type: Spontaneous
  Country: US (occurrence: None)
  Receive Date: 20130212
  Receipt Date: 20130212
  Transmission Date: 20140127
  Serious: Yes (Other)
  Sender: FDA-Public Use
  Company Number: None

PATIENT
  Age: 46 Year
  Sex: Male
  Weight: 111.13 kg

DRUGS (1)
  1. EFFEXOR [Suspect]
     Indication: SYNCOPE
     Route: 048
     Dates: start: 20050615, end: 20110630

REACTIONS (6)
  - Weight increased [None]
  - Treatment noncompliance [None]
  - Wrong technique in drug usage process [None]
  - Depression [None]
  - Suicidal ideation [None]
  - Drug withdrawal syndrome [None]
